FAERS Safety Report 23698534 (Version 1)
Quarter: 2024Q2

REPORT INFORMATION
  Report Type: Spontaneous
  Country: US (occurrence: None)
  Receive Date: 20240401
  Receipt Date: 20240401
  Transmission Date: 20240716
  Serious: No
  Sender: FDA-Public Use
  Company Number: None

PATIENT

DRUGS (2)
  1. AMIODARONE [Suspect]
     Active Substance: AMIODARONE
  2. AZITHROMYCIN [Suspect]
     Active Substance: AZITHROMYCIN

REACTIONS (2)
  - Product prescribing error [None]
  - Drug interaction [None]
